FAERS Safety Report 8591845-5 (Version None)
Quarter: 2012Q3

REPORT INFORMATION
  Report Type: 
  Country: None (occurrence: None)
  Receive Date: 20120803
  Receipt Date: 20120803
  Transmission Date: 20120928
  Serious: Yes (Disabling, Other)
  Sender: FDA-Public Use
  Company Number: None

PATIENT
  Age: 64 Year
  Sex: Male
  Weight: 79.8331 kg

DRUGS (1)
  1. LEVAQUIN [Suspect]
     Indication: PROSTATITIS
     Dosage: 500MG ONCE DAILY PO
     Route: 048
     Dates: start: 20120707, end: 20120715

REACTIONS (3)
  - TENDONITIS [None]
  - PAIN [None]
  - GAIT DISTURBANCE [None]
